FAERS Safety Report 4829576-7 (Version None)
Quarter: 2005Q4

REPORT INFORMATION
  Report Type: 
  Country: None (occurrence: None)
  Receive Date: 20051116
  Receipt Date: 20051028
  Transmission Date: 20060501
  Serious: Yes (Hospitalization, Other)
  Sender: FDA-Public Use
  Company Number: PHHO2005BR17175

PATIENT
  Age: 56 Year
  Sex: Male
  Weight: 95 kg

DRUGS (4)
  1. DIOCOMB SI [Suspect]
     Indication: HYPERTENSION
     Dosage: NOT REPORTED
     Route: 048
     Dates: start: 20050801, end: 20051015
  2. CAPTOPRIL [Suspect]
  3. ATENSINA [Suspect]
  4. ASPIRIN [Suspect]

REACTIONS (6)
  - CEREBROVASCULAR ACCIDENT [None]
  - DIABETES MELLITUS [None]
  - ERYTHEMA [None]
  - GENERALISED ERYTHEMA [None]
  - PRURITUS [None]
  - PRURITUS GENERALISED [None]
